FAERS Safety Report 4831375-7 (Version None)
Quarter: 2005Q4

REPORT INFORMATION
  Report Type: 
  Country: None (occurrence: None)
  Receive Date: 20051118
  Receipt Date: 20051116
  Transmission Date: 20060501
  Serious: Yes (Hospitalization)
  Sender: FDA-Public Use
  Company Number: US-GLAXOSMITHKLINE-A0582582A

PATIENT
  Age: 67 Year
  Sex: Male

DRUGS (9)
  1. COREG [Suspect]
     Dosage: 50MG TWICE PER DAY
     Route: 048
     Dates: start: 20010101
  2. LISINOPRIL [Concomitant]
  3. WARFARIN [Concomitant]
  4. FUROSEMIDE [Concomitant]
  5. SPIRONOLACTONE [Concomitant]
  6. ALLOPURINOL [Concomitant]
  7. NORVASC [Concomitant]
  8. PREVACID [Concomitant]
  9. FLU SHOT [Concomitant]
     Dates: start: 20040101, end: 20040101

REACTIONS (2)
  - PNEUMONIA [None]
  - PULMONARY OEDEMA [None]
